FAERS Safety Report 18054962 (Version 1)
Quarter: 2020Q3

REPORT INFORMATION
  Report Type: Spontaneous
  Country: US (occurrence: US)
  Receive Date: 20200722
  Receipt Date: 20200722
  Transmission Date: 20201103
  Serious: No
  Sender: FDA-Public Use
  Company Number: US-NXDC-GLE-0031-2020

PATIENT
  Age: 48 Year
  Sex: Female
  Weight: 169.19 kg

DRUGS (11)
  1. ZOFRAN [Concomitant]
     Active Substance: ONDANSETRON HYDROCHLORIDE
  2. KETAMINE [Concomitant]
     Active Substance: KETAMINE
  3. HYDROCHLOROTHIAZIDE. [Concomitant]
     Active Substance: HYDROCHLOROTHIAZIDE
  4. ANCEF [Concomitant]
     Active Substance: CEFAZOLIN SODIUM
  5. VERSED [Concomitant]
     Active Substance: MIDAZOLAM HYDROCHLORIDE
  6. HYDRALAZINE [Concomitant]
     Active Substance: HYDRALAZINE HYDROCHLORIDE
  7. GLEOLAN [Suspect]
     Active Substance: AMINOLEVULINIC ACID HYDROCHLORIDE
     Indication: PHOTODYNAMIC DIAGNOSTIC PROCEDURE
     Dosage: 3000 MG
     Route: 048
     Dates: start: 20200701, end: 20200701
  8. MANNITOL. [Concomitant]
     Active Substance: MANNITOL
  9. LIDOCAINE. [Concomitant]
     Active Substance: LIDOCAINE
  10. FENTANYL. [Concomitant]
     Active Substance: FENTANYL
  11. PROPOFOL. [Concomitant]
     Active Substance: PROPOFOL

REACTIONS (4)
  - Rash erythematous [Unknown]
  - Underdose [Recovered/Resolved]
  - Blood pressure increased [Recovered/Resolved]
  - Blister [Unknown]

NARRATIVE: CASE EVENT DATE: 20200701
